FAERS Safety Report 8387071-5 (Version None)
Quarter: 2012Q1

REPORT INFORMATION
  Report Type: 
  Country: None (occurrence: None)
  Receive Date: 20120323
  Receipt Date: 20110729
  Transmission Date: 20120608
  Serious: Yes (Other)
  Sender: FDA-Public Use
  Company Number: 163-21880-11040242

PATIENT
  Age: 59 Year
  Sex: Female

DRUGS (1)
  1. REVLIMID [Suspect]
     Indication: MULTIPLE MYELOMA
     Dosage: 5 MG, DAILY FOR 21 DAYS OFF 7 DAYS, PO
     Route: 048
     Dates: start: 20110111, end: 20110308

REACTIONS (2)
  - PLATELET COUNT DECREASED [None]
  - VIRAL INFECTION [None]
